FAERS Safety Report 9768292 (Version 2)
Quarter: 2014Q1

REPORT INFORMATION
  Report Type: Spontaneous
  Country: US (occurrence: US)
  Receive Date: 20131217
  Receipt Date: 20140123
  Transmission Date: 20141002
  Serious: No
  Sender: FDA-Public Use
  Company Number: US-009507513-1312USA002445

PATIENT
  Age: 27 Year
  Sex: Female
  Weight: 58.5 kg

DRUGS (1)
  1. NUVARING [Suspect]
     Dosage: 1 RING FOR 3 WEEKS
     Route: 067
     Dates: start: 20101026

REACTIONS (6)
  - Dysmenorrhoea [Unknown]
  - Device expulsion [Unknown]
  - Device expulsion [Unknown]
  - Device expulsion [Unknown]
  - Device expulsion [Unknown]
  - Incorrect drug administration duration [Unknown]
